FAERS Safety Report 5758237-5 (Version None)
Quarter: 2008Q2

REPORT INFORMATION
  Report Type: 
  Country: None (occurrence: None)
  Receive Date: 20080604
  Receipt Date: 20080526
  Transmission Date: 20081010
  Serious: Yes (Hospitalization)
  Sender: FDA-Public Use
  Company Number: DE-TEVA-172176ISR

PATIENT
  Age: 57 Year
  Sex: Male

DRUGS (1)
  1. FLUDARABINE PHOSPHATE [Suspect]

REACTIONS (2)
  - HYPOGAMMAGLOBULINAEMIA [None]
  - PSORIASIS [None]
